FAERS Safety Report 12646776 (Version 2)
Quarter: 2016Q3

REPORT INFORMATION
  Report Type: Report from Study
  Country: BR (occurrence: BR)
  Receive Date: 20160812
  Receipt Date: 20160913
  Transmission Date: 20161109
  Serious: Yes (Death)
  Sender: FDA-Public Use
  Company Number: BR-AEGERION-AEGR002699

PATIENT
  Sex: Female

DRUGS (1)
  1. MYALEPT [Suspect]
     Active Substance: METRELEPTIN
     Indication: CONGENITAL GENERALISED LIPODYSTROPHY
     Dosage: UNK
     Route: 058
     Dates: start: 20160724

REACTIONS (2)
  - Renal failure [Fatal]
  - Anaemia [Unknown]

NARRATIVE: CASE EVENT DATE: 20160801
